FAERS Safety Report 9973926 (Version 1)
Quarter: 2014Q1

REPORT INFORMATION
  Report Type: Report from Study
  Country: US (occurrence: US)
  Receive Date: 20140306
  Receipt Date: 20140306
  Transmission Date: 20141002
  Serious: No
  Sender: FDA-Public Use
  Company Number: US-ABBVIE-13P-163-1157882-00

PATIENT
  Sex: Female
  Weight: 52.21 kg

DRUGS (17)
  1. HUMIRA [Suspect]
     Indication: COLITIS ULCERATIVE
     Dates: start: 2008, end: 2008
  2. HUMIRA [Suspect]
     Dosage: TWO WEEKS AFTER 160 MG DOSE
     Dates: start: 2008, end: 2008
  3. HUMIRA [Suspect]
     Dosage: FOUR WEEKS AFTER 160 MG DOSE
     Dates: start: 2008, end: 2009
  4. HUMIRA [Suspect]
     Dates: start: 2011, end: 2011
  5. HUMIRA [Suspect]
     Dosage: TWO WEEKS AFTER 160 MG DOSE
     Dates: start: 2011, end: 2011
  6. HUMIRA [Suspect]
     Dosage: FOUR WEEKS AFTER 160 MG DOSE
     Dates: start: 2011, end: 2012
  7. HUMIRA [Suspect]
     Dates: start: 2013, end: 2013
  8. HUMIRA [Suspect]
     Dosage: TWO WEEKS AFTER 160 MG DOSE
     Dates: start: 2013, end: 2013
  9. HUMIRA [Suspect]
     Dosage: FOUR WEEKS AFTER 160 MG DOSE
     Dates: start: 2013, end: 201307
  10. HUMIRA [Suspect]
     Dates: start: 201307
  11. FOLIC ACID [Concomitant]
     Indication: VITAMIN SUPPLEMENTATION
  12. METHOTREXATE [Concomitant]
     Indication: COLITIS ULCERATIVE
  13. IRON [Concomitant]
     Indication: MINERAL SUPPLEMENTATION
  14. BOSWELLIA [Concomitant]
     Indication: PRODUCT USED FOR UNKNOWN INDICATION
  15. PROBIOTICS [Concomitant]
     Indication: PRODUCT USED FOR UNKNOWN INDICATION
  16. ASACOL HD [Concomitant]
     Indication: COLITIS ULCERATIVE
  17. UCERIS [Concomitant]
     Indication: COLITIS ULCERATIVE

REACTIONS (3)
  - Weight decreased [Unknown]
  - Colitis ulcerative [Recovered/Resolved]
  - Colitis ulcerative [Not Recovered/Not Resolved]
